FAERS Safety Report 5851266-2 (Version None)
Quarter: 2008Q3

REPORT INFORMATION
  Report Type: 
  Country: None (occurrence: None)
  Receive Date: 20080731
  Receipt Date: 20080408
  Transmission Date: 20090109
  Serious: No
  Sender: FDA-Public Use
  Company Number: US200804002319

PATIENT
  Age: 48 Year
  Sex: Male

DRUGS (4)
  1. BYETTA [Suspect]
     Indication: TYPE 2 DIABETES MELLITUS
     Dosage: 5 UG, 2/D, SUBCUTANEOUS : 10 UG, 2/D, SUBCUTANEOUS : 20 UG, SUBCUTANEOUS
     Route: 058
     Dates: start: 20080211, end: 20080219
  2. BYETTA [Suspect]
     Indication: TYPE 2 DIABETES MELLITUS
     Dosage: 5 UG, 2/D, SUBCUTANEOUS : 10 UG, 2/D, SUBCUTANEOUS : 20 UG, SUBCUTANEOUS
     Route: 058
     Dates: start: 20080408, end: 20080408
  3. BYETTA [Suspect]
     Indication: TYPE 2 DIABETES MELLITUS
     Dosage: 5 UG, 2/D, SUBCUTANEOUS : 10 UG, 2/D, SUBCUTANEOUS : 20 UG, SUBCUTANEOUS
     Route: 058
     Dates: start: 20080220
  4. METFORMIN HCL [Concomitant]

REACTIONS (1)
  - ACCIDENTAL OVERDOSE [None]
